FAERS Safety Report 5801861-1 (Version None)
Quarter: 2008Q3

REPORT INFORMATION
  Report Type: 
  Country: None (occurrence: None)
  Receive Date: 20080707
  Receipt Date: 20080701
  Transmission Date: 20090109
  Serious: Yes (Hospitalization)
  Sender: FDA-Public Use
  Company Number: JP-ASTRAZENECA-2008AP04691

PATIENT
  Age: 74 Year
  Sex: Female

DRUGS (9)
  1. ARIMIDEX [Suspect]
     Indication: BREAST CANCER
     Route: 048
     Dates: start: 20080529, end: 20080613
  2. HERCEPTIN [Suspect]
     Indication: BREAST CANCER
     Dosage: DOSE UNKNOWN
     Route: 041
     Dates: start: 20080603, end: 20080613
  3. FAMOTIDINE [Suspect]
     Dosage: 40 MG/DAY
     Route: 048
     Dates: start: 20080422, end: 20080613
  4. ZOMETA [Concomitant]
     Dosage: DOSE UNKNOWN
     Route: 041
     Dates: start: 20080522
  5. NORVASC [Concomitant]
     Route: 048
     Dates: start: 20080501, end: 20080613
  6. BLOPRESS [Concomitant]
     Route: 048
     Dates: start: 20080501, end: 20080613
  7. SELENICA-R [Concomitant]
     Dosage: DOSE UNKNOWN
     Route: 048
     Dates: start: 20080422, end: 20080613
  8. LOXONIN [Concomitant]
     Dosage: DOSE UNKNOWN
     Route: 048
     Dates: start: 20080421
  9. MUCOSTA [Concomitant]
     Dosage: DOSE UNKNOWN
     Route: 048
     Dates: start: 20080519

REACTIONS (1)
  - NEUTROPENIA [None]
